FAERS Safety Report 19159111 (Version 1)
Quarter: 2021Q2

REPORT INFORMATION
  Report Type: Spontaneous
  Country: CA (occurrence: CA)
  Receive Date: 20210420
  Receipt Date: 20210420
  Transmission Date: 20210717
  Serious: Yes (Other)
  Sender: FDA-Public Use
  Company Number: CA-PFIZER INC-2021391644

PATIENT
  Sex: Male

DRUGS (1)
  1. TAFAMIDIS MEGLUMINE [Suspect]
     Active Substance: TAFAMIDIS MEGLUMINE

REACTIONS (2)
  - Cystitis haemorrhagic [Unknown]
  - Hyponatraemia [Unknown]
